FAERS Safety Report 24309131 (Version 2)
Quarter: 2024Q3

REPORT INFORMATION
  Report Type: Spontaneous
  Country: US (occurrence: US)
  Receive Date: 20240911
  Receipt Date: 20240927
  Transmission Date: 20241016
  Serious: Yes (Hospitalization)
  Sender: TEVA
  Company Number: US-TEVA-VS-3240327

PATIENT
  Age: 66 Year
  Sex: Male

DRUGS (3)
  1. CLOPIDOGREL [Suspect]
     Active Substance: CLOPIDOGREL BISULFATE
     Indication: Iliac artery dissection
     Route: 065
  2. HEPARIN SODIUM [Suspect]
     Active Substance: HEPARIN SODIUM
     Indication: Iliac artery dissection
     Dosage: DRIP
     Route: 065
  3. ASPIRIN [Suspect]
     Active Substance: ASPIRIN
     Indication: Iliac artery dissection
     Route: 065

REACTIONS (7)
  - Subarachnoid haemorrhage [Unknown]
  - Subdural haematoma [Unknown]
  - Deep vein thrombosis [Unknown]
  - Spinal cord haematoma [Unknown]
  - Intraventricular haemorrhage [Unknown]
  - Pulmonary embolism [Unknown]
  - Large intestinal haemorrhage [Unknown]
